FAERS Safety Report 7434048-X (Version None)
Quarter: 2011Q2

REPORT INFORMATION
  Report Type: 
  Country: None (occurrence: None)
  Receive Date: 20110421
  Receipt Date: 20110421
  Transmission Date: 20111010
  Serious: No
  Sender: FDA-Public Use
  Company Number: None

PATIENT

DRUGS (2)
  1. CALDOLOR [Suspect]
     Indication: PAIN
     Dosage: 400 MG Q6H IV
     Route: 042
     Dates: start: 20110418, end: 20110419
  2. CALDOLOR [Suspect]
     Indication: PYREXIA
     Dosage: 400 MG Q6H IV
     Route: 042
     Dates: start: 20110418, end: 20110419

REACTIONS (3)
  - LIQUID PRODUCT PHYSICAL ISSUE [None]
  - INFUSION SITE PAIN [None]
  - PRODUCT QUALITY ISSUE [None]
